FAERS Safety Report 6840049-2 (Version None)
Quarter: 2010Q3

REPORT INFORMATION
  Report Type: 
  Country: None (occurrence: None)
  Receive Date: 20100713
  Receipt Date: 20100713
  Transmission Date: 20110219
  Serious: No
  Sender: FDA-Public Use
  Company Number: None

PATIENT

DRUGS (1)
  1. SEROQUEL [Suspect]

REACTIONS (11)
  - BLOOD CHOLESTEROL INCREASED [None]
  - DIABETES MELLITUS [None]
  - DIZZINESS [None]
  - DYSPNOEA [None]
  - HEADACHE [None]
  - IMPAIRED WORK ABILITY [None]
  - MOOD SWINGS [None]
  - OFF LABEL USE [None]
  - POLLAKIURIA [None]
  - TARDIVE DYSKINESIA [None]
  - WEIGHT INCREASED [None]
